FAERS Safety Report 10776701 (Version 1)
Quarter: 2015Q1

REPORT INFORMATION
  Report Type: Spontaneous
  Country: US (occurrence: US)
  Receive Date: 20150209
  Receipt Date: 20150209
  Transmission Date: 20150721
  Serious: No
  Sender: FDA-Public Use
  Company Number: US-GLAXOSMITHKLINE-A1088300A

PATIENT

DRUGS (13)
  1. PORTIA [Concomitant]
     Active Substance: ETHINYL ESTRADIOL\LEVONORGESTREL
     Indication: CONTRACEPTION
  2. RESTASIS [Concomitant]
     Active Substance: CYCLOSPORINE
  3. BIOTIN [Concomitant]
     Active Substance: BIOTIN
  4. PROBIOTIC [Concomitant]
     Active Substance: PROBIOTICS NOS
  5. BENLYSTA [Suspect]
     Active Substance: BELIMUMAB
     Indication: SYSTEMIC LUPUS ERYTHEMATOSUS
     Route: 042
     Dates: start: 201312
  6. METOPROLOL [Concomitant]
     Active Substance: METOPROLOL
  7. DIGOXIN. [Concomitant]
     Active Substance: DIGOXIN
  8. LYRICA [Concomitant]
     Active Substance: PREGABALIN
  9. TRAMADOL [Concomitant]
     Active Substance: TRAMADOL
  10. COLCRYS [Concomitant]
     Active Substance: COLCHICINE
  11. FIBER TABLET [Concomitant]
  12. CIPRO [Concomitant]
     Active Substance: CIPROFLOXACIN HYDROCHLORIDE
  13. PHENERGAN [Concomitant]
     Active Substance: PROMETHAZINE HYDROCHLORIDE

REACTIONS (5)
  - Nausea [Unknown]
  - Headache [Unknown]
  - Asthenia [Unknown]
  - Pain [Unknown]
  - Hyperhidrosis [Unknown]
